FAERS Safety Report 23448579 (Version 3)
Quarter: 2024Q1

REPORT INFORMATION
  Report Type: Report from Study
  Country: BR (occurrence: BR)
  Receive Date: 20240127
  Receipt Date: 20240221
  Transmission Date: 20240410
  Serious: Yes (Death, Other)
  Sender: FDA-Public Use
  Company Number: BR-002147023-NVSC2024BR016581

PATIENT
  Age: 56 Year
  Sex: Female

DRUGS (1)
  1. KISQALI [Suspect]
     Active Substance: RIBOCICLIB
     Indication: Breast cancer
     Dosage: UNK
     Route: 065
     Dates: start: 202301

REACTIONS (13)
  - Sepsis [Fatal]
  - Post procedural haemorrhage [Unknown]
  - Breast cancer [Unknown]
  - Malignant neoplasm progression [Unknown]
  - Retching [Unknown]
  - Anaemia [Unknown]
  - Somnolence [Unknown]
  - Depression [Unknown]
  - Diarrhoea [Unknown]
  - Nodule [Unknown]
  - Post procedural erythema [Unknown]
  - Feeling hot [Unknown]
  - Postoperative wound infection [Unknown]

NARRATIVE: CASE EVENT DATE: 20230901
